FAERS Safety Report 24286036 (Version 2)
Quarter: 2024Q3

REPORT INFORMATION
  Report Type: Spontaneous
  Country: US (occurrence: US)
  Receive Date: 20240905
  Receipt Date: 20240920
  Transmission Date: 20241017
  Serious: Yes (Hospitalization)
  Sender: TEVA
  Company Number: US-TEVA-VS-3238591

PATIENT
  Age: 26 Year
  Sex: Female

DRUGS (10)
  1. POSACONAZOLE [Suspect]
     Active Substance: POSACONAZOLE
     Indication: Antifungal prophylaxis
     Route: 048
  2. CASPOFUNGIN [Suspect]
     Active Substance: CASPOFUNGIN
     Indication: Fusarium infection
     Route: 065
  3. LEVOFLOXACIN [Concomitant]
     Active Substance: LEVOFLOXACIN
     Indication: Antibiotic prophylaxis
  4. VENETOCLAX [Suspect]
     Active Substance: VENETOCLAX
     Indication: Acute myeloid leukaemia
     Route: 065
  5. DECITABINE [Suspect]
     Active Substance: DECITABINE
     Indication: Acute myeloid leukaemia
     Route: 065
  6. ISAVUCONAZONIUM [Suspect]
     Active Substance: ISAVUCONAZONIUM
     Indication: Fusarium infection
     Route: 048
  7. ACYCLOVIR [Concomitant]
     Active Substance: ACYCLOVIR
     Indication: Antiviral prophylaxis
     Route: 065
  8. VORICONAZOLE [Suspect]
     Active Substance: VORICONAZOLE
     Indication: Fusarium infection
     Route: 042
  9. AMPHOTERICIN B [Concomitant]
     Active Substance: AMPHOTERICIN B
     Indication: Fusarium infection
  10. MEROPENEM [Concomitant]
     Active Substance: MEROPENEM
     Indication: Escherichia infection
     Route: 065

REACTIONS (4)
  - Fusarium infection [Recovering/Resolving]
  - Hallucination [Recovered/Resolved]
  - Drug ineffective [Unknown]
  - Tremor [Recovered/Resolved]
